FAERS Safety Report 5227917-2 (Version None)
Quarter: 2007Q1

REPORT INFORMATION
  Report Type: 
  Country: None (occurrence: None)
  Receive Date: 20070202
  Receipt Date: 20070110
  Transmission Date: 20070707
  Serious: Yes (Hospitalization, Other)
  Sender: FDA-Public Use
  Company Number: US-PFIZER INC-2006065772

PATIENT
  Sex: Male
  Weight: 113 kg

DRUGS (13)
  1. CELEBREX [Suspect]
     Route: 065
  2. AMARYL [Concomitant]
     Route: 065
  3. LOTENSIN [Concomitant]
     Route: 065
  4. VIOXX [Concomitant]
     Route: 065
  5. FUROSEMIDE [Concomitant]
     Route: 065
  6. VIAGRA [Concomitant]
     Route: 065
  7. K-DUR 10 [Concomitant]
     Route: 065
  8. CEPHALEXIN [Concomitant]
     Route: 065
  9. LISINOPRIL [Concomitant]
  10. COREG [Concomitant]
  11. LIPITOR [Concomitant]
  12. NOVOLOG [Concomitant]
  13. ASPIRIN [Concomitant]

REACTIONS (13)
  - ACUTE MYOCARDIAL INFARCTION [None]
  - CARDIAC FAILURE CONGESTIVE [None]
  - CARPAL TUNNEL SYNDROME [None]
  - CATARACT [None]
  - CORONARY ARTERY DISEASE [None]
  - DIABETES MELLITUS [None]
  - EPISTAXIS [None]
  - HAEMATURIA [None]
  - HYPERLIPIDAEMIA [None]
  - HYPERTENSION [None]
  - KNEE DEFORMITY [None]
  - OBESITY [None]
  - WHEEZING [None]
